FAERS Safety Report 7292801-X (Version None)
Quarter: 2011Q1

REPORT INFORMATION
  Report Type: 
  Country: None (occurrence: None)
  Receive Date: 20110215
  Receipt Date: 20110202
  Transmission Date: 20110831
  Serious: Yes (Hospitalization, Disabling, Other)
  Sender: FDA-Public Use
  Company Number: US-ELI_LILLY_AND_COMPANY-US201012005234

PATIENT
  Sex: Female
  Weight: 58.957 kg

DRUGS (16)
  1. LEVETIRACETAM [Concomitant]
     Dosage: 500 MG, 2/D
     Route: 048
  2. SYNTHROID [Concomitant]
     Dosage: 75 UG, DAILY (1/D)
     Route: 048
  3. CALCITRIOL [Concomitant]
     Dosage: 0.25 UG, DAILY (1/D)
  4. LASIX [Concomitant]
     Dosage: 20 MG, 2/D
     Route: 048
  5. GABAPENTIN [Concomitant]
     Dosage: 400 MG, 2/D
     Route: 048
  6. VITAMIN D [Concomitant]
     Dosage: 50000 UNITS,
  7. CYMBALTA [Concomitant]
     Dosage: 20 MG, EACH MORNING
     Route: 048
  8. NEXIUM [Concomitant]
     Dosage: 40 MG, AS NEEDED
  9. FORTEO [Suspect]
     Indication: OSTEOPOROSIS
     Dosage: 20 UG, DAILY (1/D)
     Route: 058
  10. PRAVACHOL [Concomitant]
     Dosage: 20 MG, EACH EVENING
     Route: 048
  11. COREG [Concomitant]
     Dosage: 6.25 MG, 2/D
     Route: 048
  12. POTASSIUM CHLORIDE [Concomitant]
     Dosage: 10 MEQ, EACH MORNING
  13. FRAGMIN [Concomitant]
     Dosage: 10000 UNITS SQ, DAILY (1/D)
  14. CALCIUM [Concomitant]
     Dosage: UNK, DAILY (1/D)
  15. VASOTEC [Concomitant]
     Dosage: 2.5 MG, 2/D
     Route: 048
  16. BUDESONIDE [Concomitant]
     Dosage: 3 MG, DAILY (1/D)
     Route: 048

REACTIONS (1)
  - CONVULSION [None]
